FAERS Safety Report 5276260-4 (Version None)
Quarter: 2007Q1

REPORT INFORMATION
  Report Type: 
  Country: None (occurrence: None)
  Receive Date: 20070326
  Receipt Date: 20070314
  Transmission Date: 20070707
  Serious: Yes (Other)
  Sender: FDA-Public Use
  Company Number: US-PFIZER INC-2007022379

PATIENT
  Sex: Female
  Weight: 54.4 kg

DRUGS (1)
  1. XALATAN [Suspect]
     Indication: GLAUCOMA
     Route: 047

REACTIONS (4)
  - CATARACT [None]
  - EYE IRRITATION [None]
  - GLAUCOMA SURGERY [None]
  - LACRIMATION INCREASED [None]
